FAERS Safety Report 6451571-5 (Version None)
Quarter: 2009Q4

REPORT INFORMATION
  Report Type: 
  Country: None (occurrence: None)
  Receive Date: 20091123
  Receipt Date: 20091112
  Transmission Date: 20100525
  Serious: Yes (Hospitalization, Disabling)
  Sender: FDA-Public Use
  Company Number: DK-JNJFOC-20090704230

PATIENT
  Sex: Male

DRUGS (2)
  1. REMICADE [Suspect]
     Indication: RHEUMATOID ARTHRITIS
     Route: 042
  2. METHOTREXATE [Suspect]
     Indication: RHEUMATOID ARTHRITIS

REACTIONS (9)
  - CANDIDA PNEUMONIA [None]
  - CONGESTIVE CARDIOMYOPATHY [None]
  - DIZZINESS [None]
  - DRUG INEFFECTIVE [None]
  - LUNG INFILTRATION [None]
  - MALAISE [None]
  - PULMONARY FIBROSIS [None]
  - RHEUMATOID ARTHRITIS [None]
  - UPPER RESPIRATORY TRACT INFECTION [None]
